FAERS Safety Report 5005871-6 (Version None)
Quarter: 2006Q2

REPORT INFORMATION
  Report Type: 
  Country: None (occurrence: None)
  Receive Date: 20060515
  Receipt Date: 20060501
  Transmission Date: 20061013
  Serious: Yes (Hospitalization)
  Sender: FDA-Public Use
  Company Number: SUSI-2006-00251

PATIENT
  Age: 19 Year
  Sex: Male

DRUGS (7)
  1. ADDERALL 10 [Suspect]
     Indication: ATTENTION DEFICIT/HYPERACTIVITY DISORDER
     Dosage: 10 MG, 2X/DAY: BID
     Dates: start: 20050101, end: 20060201
  2. GENERIC AMPHETAMINE (GENERIC AMPHETAMINE) [Suspect]
     Indication: ATTENTION DEFICIT/HYPERACTIVITY DISORDER
     Dosage: 10 MG, 2X/DAY: BID
     Dates: start: 20060201, end: 20060201
  3. LAMICTAL [Concomitant]
  4. SUDAFED /00076302/ [Concomitant]
  5. ADVIL COLD SINUS (IBUPROFEN) [Concomitant]
  6. SINGULAIR /01362601/(MONTELUKAST) [Concomitant]
  7. MARIJUANA (CANNABIS SATIVA) [Concomitant]

REACTIONS (7)
  - ACUTE MYOCARDIAL INFARCTION [None]
  - ARTERIOSPASM CORONARY [None]
  - CONTRAST MEDIA REACTION [None]
  - INFLUENZA LIKE ILLNESS [None]
  - MYOCARDITIS [None]
  - NASOPHARYNGITIS [None]
  - THERAPY NON-RESPONDER [None]
